FAERS Safety Report 11884341 (Version 1)
Quarter: 2016Q1

REPORT INFORMATION
  Report Type: Spontaneous
  Country: US (occurrence: US)
  Receive Date: 20160103
  Receipt Date: 20160103
  Transmission Date: 20160526
  Serious: No
  Sender: FDA-Public Use
  Company Number: US-009507513-1512USA012030

PATIENT
  Sex: Female

DRUGS (1)
  1. NEXPLANON [Suspect]
     Active Substance: ETONOGESTREL
     Dosage: 68 MG 1 STANDARD PACKAGE PREFLAPP OF 1
     Route: 059

REACTIONS (2)
  - Device difficult to use [Not Recovered/Not Resolved]
  - No adverse event [Unknown]
